FAERS Safety Report 11924105 (Version 1)
Quarter: 2016Q1

REPORT INFORMATION
  Report Type: Spontaneous
  Country: US (occurrence: US)
  Receive Date: 20160118
  Receipt Date: 20160118
  Transmission Date: 20160526
  Serious: No
  Sender: FDA-Public Use
  Company Number: US-PFIZER INC-2016015840

PATIENT

DRUGS (10)
  1. TEGRETOL [Suspect]
     Active Substance: CARBAMAZEPINE
     Dosage: UNK
  2. TOPAMAX [Suspect]
     Active Substance: TOPIRAMATE
     Dosage: UNK
  3. DEPAKOTE [Suspect]
     Active Substance: DIVALPROEX SODIUM
     Dosage: UNK
  4. KEPPRA [Suspect]
     Active Substance: LEVETIRACETAM
     Dosage: UNK
  5. LAMICTAL [Suspect]
     Active Substance: LAMOTRIGINE
     Dosage: UNK
  6. PHENOBARBITAL. [Concomitant]
     Active Substance: PHENOBARBITAL
     Indication: SEIZURE
     Dosage: UNK (A DAY EVERY DAY TO A COUPLE OF TIMES A WEEK)
  7. ONFI [Concomitant]
     Active Substance: CLOBAZAM
     Indication: SEIZURE
     Dosage: UNK (A DAY EVERY DAY TO A COUPLE OF TIMES A WEEK)
  8. DILANTIN [Suspect]
     Active Substance: PHENYTOIN
     Dosage: UNK
  9. VIMPAT [Suspect]
     Active Substance: LACOSAMIDE
     Dosage: UNK
  10. FYCOMPA [Suspect]
     Active Substance: PERAMPANEL
     Dosage: UNK

REACTIONS (1)
  - Drug hypersensitivity [Unknown]
